FAERS Safety Report 18337977 (Version 1)
Quarter: 2020Q4

REPORT INFORMATION
  Report Type: Spontaneous
  Country: AU (occurrence: AU)
  Receive Date: 20201002
  Receipt Date: 20201002
  Transmission Date: 20210113
  Serious: Yes (Hospitalization)
  Sender: FDA-Public Use
  Company Number: AU-ENDO PHARMACEUTICALS INC-2020-006395

PATIENT
  Age: 2 Year
  Sex: Male
  Weight: 14 kg

DRUGS (2)
  1. LAMOTRIGINE. [Suspect]
     Active Substance: LAMOTRIGINE
     Indication: PRODUCT USED FOR UNKNOWN INDICATION
     Dosage: 600 MG (43 MG/KG), SINGLE
     Route: 048
  2. LORAZEPAM. [Suspect]
     Active Substance: LORAZEPAM
     Indication: PRODUCT USED FOR UNKNOWN INDICATION
     Dosage: 8 MG, SINGLE
     Route: 048

REACTIONS (3)
  - Accidental exposure to product by child [Recovered/Resolved]
  - Accidental overdose [Recovered/Resolved]
  - Seizure [Recovered/Resolved]
